FAERS Safety Report 4264764-2 (Version None)
Quarter: 2004Q1

REPORT INFORMATION
  Report Type: 
  Country: None (occurrence: None)
  Receive Date: 20040105
  Receipt Date: 20031218
  Transmission Date: 20041129
  Serious: Yes (Death)
  Sender: FDA-Public Use
  Company Number: 183935

PATIENT
  Age: 57 Year
  Sex: Female

DRUGS (1)
  1. AVONEX [Suspect]
     Indication: MULTIPLE SCLEROSIS
     Dates: start: 19970921, end: 20010101

REACTIONS (3)
  - GASTROINTESTINAL DISORDER [None]
  - MARKEDLY REDUCED DIETARY INTAKE [None]
  - PNEUMONIA ASPIRATION [None]
